FAERS Safety Report 5627574-7 (Version None)
Quarter: 2008Q1

REPORT INFORMATION
  Report Type: 
  Country: None (occurrence: None)
  Receive Date: 20080215
  Receipt Date: 20080115
  Transmission Date: 20080703
  Serious: No
  Sender: FDA-Public Use
  Company Number: A0703356A

PATIENT
  Age: 73 Year
  Sex: Male

DRUGS (3)
  1. COREG CR [Suspect]
     Indication: HYPERTENSION
     Dosage: 20MG PER DAY
     Route: 048
     Dates: start: 20070101
  2. COZAAR [Concomitant]
  3. INSULIN [Concomitant]

REACTIONS (2)
  - BLOOD CREATININE INCREASED [None]
  - PAIN IN EXTREMITY [None]
